FAERS Safety Report 7745942-4 (Version None)
Quarter: 2011Q3

REPORT INFORMATION
  Report Type: 
  Country: None (occurrence: None)
  Receive Date: 20110913
  Receipt Date: 20110902
  Transmission Date: 20111222
  Serious: Yes (Other)
  Sender: FDA-Public Use
  Company Number: JP-AMGEN-JPNSP2011042306

PATIENT
  Age: 41 Year
  Sex: Female
  Weight: 42.6 kg

DRUGS (3)
  1. ENBREL [Suspect]
     Dosage: 25 MG ONCE EVERY 4 DAYS
     Route: 058
  2. ENBREL [Suspect]
     Indication: RHEUMATOID ARTHRITIS
     Dosage: 25 MG, 2X/WEEK
     Route: 058
     Dates: start: 20101122
  3. ENBREL [Suspect]
     Dosage: 25 MG ONCE EVERY 5 DAYS
     Route: 058
     Dates: end: 20110811

REACTIONS (5)
  - STREPTOCOCCAL INFECTION [None]
  - STAPHYLOCOCCAL INFECTION [None]
  - ORGANISING PNEUMONIA [None]
  - PNEUMONIA [None]
  - INTERSTITIAL LUNG DISEASE [None]
